FAERS Safety Report 4292268-X (Version None)
Quarter: 2004Q1

REPORT INFORMATION
  Report Type: 
  Country: None (occurrence: None)
  Receive Date: 20040211
  Receipt Date: 20040202
  Transmission Date: 20041129
  Serious: Yes (Other)
  Sender: FDA-Public Use
  Company Number: DE-GLAXOSMITHKLINE-D0043038A

PATIENT
  Sex: Female

DRUGS (1)
  1. RELENZA [Suspect]
     Indication: INFLUENZA
     Route: 055
     Dates: start: 20031201, end: 20030101

REACTIONS (4)
  - COUGH [None]
  - DYSPNOEA [None]
  - RESPIRATORY DISORDER [None]
  - SUPERINFECTION [None]
